FAERS Safety Report 9524387 (Version 1)
Quarter: 2013Q1

REPORT INFORMATION
  Report Type: Spontaneous
  Country: US (occurrence: None)
  Receive Date: 20130305
  Receipt Date: 20130305
  Transmission Date: 20140127
  Serious: Yes (Hospitalization, Other)
  Sender: FDA-Public Use
  Company Number: 163-21880-12022176

PATIENT
  Age: 65 Year
  Sex: Female

DRUGS (8)
  1. REVLIMID [Suspect]
     Indication: PLASMA CELL MYELOMA
     Route: 048
     Dates: start: 20100326, end: 20101019
  2. SYNTHROID (LEVOTHYROXINE SODIUM) (UNKNOWN) [Concomitant]
  3. LIPITOR (ATORVASTATIN) (UNKNOWN) [Concomitant]
  4. PLAVIX (CLOPIDOGREL SULFATE) (UNKNOWN) [Concomitant]
  5. OMEPRAZOLE (OMEPRAZOLE) (UNKNOWN) [Concomitant]
  6. AMLODIPINE (AMLODIPINE) (UNKNOWN) [Concomitant]
  7. GABAPENTIN (GABAPENTIN) (UNKNOWN) (GABAPENTIN) [Concomitant]
  8. METOPROLOL (METOPROLOL) (UNKNOWN) [Concomitant]

REACTIONS (2)
  - Pneumonia [None]
  - Pyrexia [None]
